FAERS Safety Report 5070711-6 (Version None)
Quarter: 2006Q3

REPORT INFORMATION
  Report Type: 
  Country: None (occurrence: None)
  Receive Date: 20060804
  Receipt Date: 20051011
  Transmission Date: 20061208
  Serious: No
  Sender: FDA-Public Use
  Company Number: US-GLAXOSMITHKLINE-A0577767A

PATIENT
  Sex: Male

DRUGS (1)
  1. NICORETTE [Suspect]
     Dates: start: 20050810

REACTIONS (2)
  - EAR INFECTION [None]
  - EAR PAIN [None]
